FAERS Safety Report 9637368 (Version 3)
Quarter: 2013Q4

REPORT INFORMATION
  Report Type: Report from Study
  Country: AU (occurrence: AU)
  Receive Date: 20131022
  Receipt Date: 20131029
  Transmission Date: 20140711
  Serious: Yes (Life-Threatening, Other)
  Sender: FDA-Public Use
  Company Number: PHHY2013AU092596

PATIENT
  Age: 81 Year
  Sex: Female
  Weight: 60 kg

DRUGS (12)
  1. ACLASTA [Suspect]
     Dosage: 5 MG/100ML
     Route: 042
     Dates: start: 20130819
  2. ENALAPRIL [Concomitant]
     Dosage: 10 MG, UNK
  3. LERCANIDIPINE [Concomitant]
     Dosage: 20 MG, UNK
  4. ATENOLOL [Concomitant]
     Dosage: 50 MG, DAILY
  5. NATRILIX [Concomitant]
     Dosage: 1.5 MG, DAILY
  6. METFORMIN [Concomitant]
     Dosage: 1 G, UNK
  7. LYRICA [Concomitant]
     Dosage: 75 MG, PRN
  8. LIPITOR [Concomitant]
     Dosage: 10 MG, DAILY
  9. DURIDE//ISOSORBIDE MONONITRATE [Concomitant]
     Dosage: 30 MG, DAILY
  10. ASPIRIN [Concomitant]
     Dosage: 100 MG, DAILY
  11. ZANIDIP [Concomitant]
     Dosage: UNK UKN, UNK
  12. ZANEXTRA [Concomitant]
     Indication: HYPERTENSION
     Dosage: UNK UKN, UNK (10/20 MG)

REACTIONS (24)
  - Renal tubular necrosis [Recovering/Resolving]
  - Renal failure acute [Unknown]
  - Renal impairment [Unknown]
  - Renal ischaemia [Unknown]
  - Dehydration [Recovering/Resolving]
  - Renal injury [Recovering/Resolving]
  - Drug hypersensitivity [Unknown]
  - Diarrhoea [Recovering/Resolving]
  - Escherichia urinary tract infection [Unknown]
  - Urinary tract infection enterococcal [Unknown]
  - Abnormal dreams [Unknown]
  - Confusional state [Unknown]
  - Gamma-glutamyltransferase increased [Unknown]
  - Pyrexia [Recovered/Resolved]
  - Hyperhidrosis [Unknown]
  - Dizziness [Unknown]
  - Pain [Unknown]
  - Malaise [Unknown]
  - Chills [Unknown]
  - Asthenia [Unknown]
  - Somnolence [Unknown]
  - Nausea [Unknown]
  - Vomiting [Unknown]
  - Abdominal pain [Unknown]
